FAERS Safety Report 22299033 (Version 2)
Quarter: 2023Q2

REPORT INFORMATION
  Report Type: Spontaneous
  Country: BR (occurrence: BR)
  Receive Date: 20230509
  Receipt Date: 20230519
  Transmission Date: 20230722
  Serious: Yes (Other)
  Sender: FDA-Public Use
  Company Number: BR-EXELTIS PHARMACEUTICAL HOLDING, S.L.-2304BR02781

PATIENT
  Sex: Female

DRUGS (1)
  1. DROSPIRENONE [Suspect]
     Active Substance: DROSPIRENONE
     Indication: Oral contraception

REACTIONS (1)
  - Uterine leiomyoma [Unknown]
